FAERS Safety Report 10458971 (Version 2)
Quarter: 2014Q4

REPORT INFORMATION
  Report Type: Spontaneous
  Country: CA (occurrence: CA)
  Receive Date: 20140917
  Receipt Date: 20141117
  Transmission Date: 20150528
  Serious: Yes (Other)
  Sender: FDA-Public Use
  Company Number: CA-SA-2014SA125526

PATIENT
  Age: 44 Year
  Sex: Female

DRUGS (38)
  1. XYREM [Interacting]
     Active Substance: SODIUM OXYBATE
     Indication: NARCOLEPSY
     Route: 048
     Dates: start: 20120913, end: 20130403
  2. XYREM [Interacting]
     Active Substance: SODIUM OXYBATE
     Indication: HYPERSENSITIVITY
     Route: 048
     Dates: start: 20120913, end: 20130403
  3. XYREM [Interacting]
     Active Substance: SODIUM OXYBATE
     Indication: NARCOLEPSY
     Dosage: DOSE-3.75 GM X 3.5 GM
     Route: 048
     Dates: start: 20130622, end: 20130624
  4. XYREM [Interacting]
     Active Substance: SODIUM OXYBATE
     Indication: NARCOLEPSY
     Dosage: DOSE- 3.75 G AND 3.5 G
     Route: 048
     Dates: start: 20130625, end: 20130627
  5. ALBUTEROL SULFATE. [Concomitant]
     Active Substance: ALBUTEROL SULFATE
     Route: 055
  6. MODAFINIL. [Concomitant]
     Active Substance: MODAFINIL
     Route: 065
  7. NASONEX [Concomitant]
     Active Substance: MOMETASONE FUROATE
     Indication: MULTIPLE ALLERGIES
     Route: 065
  8. CLARITIN [Interacting]
     Active Substance: LORATADINE
     Indication: SINUS DISORDER
     Route: 065
     Dates: end: 201305
  9. XYREM [Interacting]
     Active Substance: SODIUM OXYBATE
     Indication: HYPERSENSITIVITY
     Route: 048
     Dates: start: 20111019, end: 20111201
  10. XYREM [Interacting]
     Active Substance: SODIUM OXYBATE
     Indication: NARCOLEPSY
     Dosage: DOSE- 3.75 G AND 3.5 G
     Route: 048
     Dates: start: 20130614, end: 20130615
  11. XYREM [Interacting]
     Active Substance: SODIUM OXYBATE
     Indication: NARCOLEPSY
     Dosage: DOSE- 3.75 G AND 3.5 G
     Route: 048
     Dates: start: 20130628
  12. XYREM [Interacting]
     Active Substance: SODIUM OXYBATE
     Indication: NARCOLEPSY
     Route: 048
     Dates: start: 20130411, end: 20130412
  13. XYREM [Interacting]
     Active Substance: SODIUM OXYBATE
     Indication: HYPERSENSITIVITY
     Route: 048
     Dates: start: 20111202, end: 20120912
  14. XYREM [Interacting]
     Active Substance: SODIUM OXYBATE
     Indication: HYPERSENSITIVITY
     Dosage: DOSE-3.75 GM X 3.5 GM
     Route: 048
     Dates: start: 20130622, end: 20130624
  15. CLARITIN [Interacting]
     Active Substance: LORATADINE
     Indication: MULTIPLE ALLERGIES
     Route: 065
     Dates: end: 201305
  16. RABEPRAZOLE [Interacting]
     Active Substance: RABEPRAZOLE
     Route: 065
     Dates: start: 201304, end: 201304
  17. XYREM [Interacting]
     Active Substance: SODIUM OXYBATE
     Indication: NARCOLEPSY
     Route: 048
     Dates: start: 20130404, end: 20130412
  18. XYREM [Interacting]
     Active Substance: SODIUM OXYBATE
     Indication: NARCOLEPSY
     Route: 048
     Dates: start: 20130412, end: 201305
  19. XYREM [Interacting]
     Active Substance: SODIUM OXYBATE
     Indication: HYPERSENSITIVITY
     Route: 048
     Dates: start: 201305, end: 20130613
  20. XYREM [Interacting]
     Active Substance: SODIUM OXYBATE
     Indication: NARCOLEPSY
     Route: 048
     Dates: start: 20130616, end: 20130619
  21. CICLESONIDE [Concomitant]
     Active Substance: CICLESONIDE
     Route: 055
  22. MULTIVITAMINS [Concomitant]
     Active Substance: VITAMINS
  23. RABEPRAZOLE [Interacting]
     Active Substance: RABEPRAZOLE
     Route: 065
     Dates: end: 201304
  24. RABEPRAZOLE [Interacting]
     Active Substance: RABEPRAZOLE
     Route: 065
     Dates: start: 201304
  25. XYREM [Interacting]
     Active Substance: SODIUM OXYBATE
     Indication: HYPERSENSITIVITY
     Dosage: DOSE- 3.75 G AND 3.5 G
     Route: 048
     Dates: start: 20130614, end: 20130615
  26. XYREM [Interacting]
     Active Substance: SODIUM OXYBATE
     Indication: HYPERSENSITIVITY
     Dosage: DOSE- 3.75 G AND 3.5 G
     Route: 048
     Dates: start: 20130628
  27. XYREM [Interacting]
     Active Substance: SODIUM OXYBATE
     Indication: HYPERSENSITIVITY
     Route: 048
     Dates: start: 20130411, end: 20130412
  28. SALBUTAMOL [Concomitant]
     Active Substance: ALBUTEROL
  29. ALLEGRA [Suspect]
     Active Substance: FEXOFENADINE HYDROCHLORIDE
     Route: 065
  30. CLARITIN [Interacting]
     Active Substance: LORATADINE
     Indication: HYPERSENSITIVITY
     Route: 065
     Dates: end: 201305
  31. XYREM [Interacting]
     Active Substance: SODIUM OXYBATE
     Indication: HYPERSENSITIVITY
     Route: 048
     Dates: start: 20130616, end: 20130619
  32. DEXTROAMPHETAMINE [Concomitant]
     Active Substance: DEXTROAMPHETAMINE
     Dosage: DOSE- 5-10 MG ONCE OR TWICE A DAY
     Route: 065
  33. XYREM [Interacting]
     Active Substance: SODIUM OXYBATE
     Indication: NARCOLEPSY
     Route: 048
     Dates: start: 20111019, end: 20111201
  34. XYREM [Interacting]
     Active Substance: SODIUM OXYBATE
     Indication: NARCOLEPSY
     Route: 048
     Dates: start: 20111202, end: 20120912
  35. XYREM [Interacting]
     Active Substance: SODIUM OXYBATE
     Indication: HYPERSENSITIVITY
     Route: 048
     Dates: start: 20130412, end: 201305
  36. XYREM [Interacting]
     Active Substance: SODIUM OXYBATE
     Indication: HYPERSENSITIVITY
     Route: 048
     Dates: start: 20130404, end: 20130412
  37. XYREM [Interacting]
     Active Substance: SODIUM OXYBATE
     Indication: NARCOLEPSY
     Route: 048
     Dates: start: 201305, end: 20130613
  38. XYREM [Interacting]
     Active Substance: SODIUM OXYBATE
     Indication: HYPERSENSITIVITY
     Dosage: DOSE- 3.75 G AND 3.5 G
     Route: 048
     Dates: start: 20130625, end: 20130627

REACTIONS (16)
  - Blindness transient [Unknown]
  - Eyelid disorder [Unknown]
  - Gait disturbance [Unknown]
  - Paraesthesia oral [Unknown]
  - Drug interaction [Unknown]
  - Disorientation [Unknown]
  - Fall [Unknown]
  - Oral disorder [Unknown]
  - Pseudoparalysis [Unknown]
  - Oedema mouth [Recovered/Resolved]
  - Nausea [Recovered/Resolved]
  - Seizure [Unknown]
  - Sleep disorder [Unknown]
  - Cataplexy [Unknown]
  - Memory impairment [Unknown]
  - Sleep talking [Recovered/Resolved]

NARRATIVE: CASE EVENT DATE: 201304
